APPROVED DRUG PRODUCT: ELIGLUSTAT TARTRATE
Active Ingredient: ELIGLUSTAT TARTRATE
Strength: EQ 84MG BASE
Dosage Form/Route: CAPSULE;ORAL
Application: A212369 | Product #001 | TE Code: AB
Applicant: CIPLA LTD
Approved: Dec 10, 2024 | RLD: No | RS: No | Type: RX